FAERS Safety Report 8919140 (Version 2)
Quarter: 2012Q4

REPORT INFORMATION
  Report Type: Report from Study
  Country: CA (occurrence: CA)
  Receive Date: 20121121
  Receipt Date: 20121129
  Transmission Date: 20130627
  Serious: Yes (Hospitalization)
  Sender: FDA-Public Use
  Company Number: CA-JNJFOC-20121105738

PATIENT
  Age: 72 Year
  Sex: Female
  Weight: 63 kg

DRUGS (18)
  1. REMICADE [Suspect]
     Indication: CROHN^S DISEASE
     Route: 042
     Dates: start: 20111027
  2. REMICADE [Suspect]
     Indication: CROHN^S DISEASE
     Route: 042
     Dates: start: 20120531
  3. REMICADE [Suspect]
     Indication: CROHN^S DISEASE
     Route: 042
     Dates: start: 20120727
  4. REMICADE [Suspect]
     Indication: CROHN^S DISEASE
     Dosage: 37 infusions till date
     Route: 042
     Dates: start: 200609
  5. DILTIAZEM [Concomitant]
     Route: 065
  6. ASPIRIN [Concomitant]
     Route: 065
  7. IMURAN [Concomitant]
     Route: 065
  8. PANTOPRAZOLE [Concomitant]
     Route: 065
  9. CRESTOR [Concomitant]
     Route: 065
  10. EZETROL [Concomitant]
     Route: 065
  11. LEVOTHYROXINE [Concomitant]
     Route: 065
  12. ESTROGENS [Concomitant]
     Dosage: every alter day
     Route: 065
  13. HYDROCHLOROTHIAZIDE [Concomitant]
     Dosage: every alter day or half a day
     Route: 065
  14. IRON [Concomitant]
     Dosage: IRON-EURO-FER
     Route: 065
  15. GLUCOSAMINE [Concomitant]
     Route: 065
  16. LACTOSE [Concomitant]
     Dosage: hour of sleep
     Route: 065
  17. DOMPERIDONE [Concomitant]
     Route: 065
  18. CALCIUM [Concomitant]
     Route: 065

REACTIONS (1)
  - Myocardial infarction [Recovered/Resolved]
